FAERS Safety Report 7017826-0 (Version None)
Quarter: 2010Q3

REPORT INFORMATION
  Report Type: 
  Country: None (occurrence: None)
  Receive Date: 20100909
  Receipt Date: 20100624
  Transmission Date: 20110219
  Serious: No
  Sender: FDA-Public Use
  Company Number: 2010SP035891

PATIENT
  Sex: Male

DRUGS (1)
  1. SAPHRIS [Suspect]
     Indication: BIPOLAR DISORDER
     Dates: end: 20100624

REACTIONS (1)
  - BLOOD GLUCOSE INCREASED [None]
